FAERS Safety Report 8312751-7 (Version None)
Quarter: 2012Q2

REPORT INFORMATION
  Report Type: 
  Country: None (occurrence: None)
  Receive Date: 20120426
  Receipt Date: 20120412
  Transmission Date: 20120825
  Serious: Yes (Hospitalization, Other)
  Sender: FDA-Public Use
  Company Number: NL-AMGEN-NLDSP2012021663

PATIENT
  Age: 64 Year
  Sex: Male
  Weight: 60 kg

DRUGS (5)
  1. ENBREL [Suspect]
     Dosage: 50 MG, WEEKLY
     Dates: start: 20120124
  2. METHOTREXATE SODIUM [Concomitant]
     Indication: RHEUMATOID ARTHRITIS
     Dosage: UNK
  3. PREDNISOLONE [Concomitant]
     Dosage: UNK
     Dates: start: 20120405
  4. ENBREL [Suspect]
     Indication: RHEUMATOID ARTHRITIS
     Dosage: 50 MG, WEEKLY
     Dates: start: 20120101
  5. RISEDRONATE SODIUM [Concomitant]
     Dosage: UNK
     Dates: start: 20120406

REACTIONS (7)
  - DYSPNOEA [None]
  - COUGH [None]
  - DIZZINESS [None]
  - THIRST [None]
  - FEELING ABNORMAL [None]
  - FATIGUE [None]
  - PULMONARY OEDEMA [None]
